FAERS Safety Report 8320728-0 (Version None)
Quarter: 2012Q2

REPORT INFORMATION
  Report Type: 
  Country: None (occurrence: None)
  Receive Date: 20120430
  Receipt Date: 20120418
  Transmission Date: 20120825
  Serious: Yes (Hospitalization, Other)
  Sender: FDA-Public Use
  Company Number: US-ELI_LILLY_AND_COMPANY-US201203004432

PATIENT
  Sex: Female

DRUGS (25)
  1. GABAPENTIN [Concomitant]
     Dosage: 300 MG, UNK
  2. OMEPRAZOLE [Concomitant]
     Dosage: 20 MG, UNK
  3. DRISDOL [Concomitant]
     Dosage: 5000 IU, WEEKLY (1/W)
     Route: 048
     Dates: start: 20110419
  4. SENOKOT [Concomitant]
     Dosage: UNK, PRN
  5. ASPIRIN [Concomitant]
     Dosage: 325 MG, QD
  6. ESTER-C [Concomitant]
     Dosage: 500 MG, QD
  7. FORTEO [Suspect]
     Dosage: 20 UG, QD
     Route: 058
     Dates: end: 20120301
  8. LIDODERM [Concomitant]
     Dosage: 1 DF, QD
     Route: 062
     Dates: start: 20111117
  9. LISINOPRIL [Concomitant]
     Dosage: 10 MG, UNK
  10. HYDROCODONE BITARTRATE + ACETAMINOPHEN [Concomitant]
  11. TRAMADOL [Concomitant]
     Dosage: 100 MG, QD
     Route: 048
  12. IBUPROFEN (ADVIL) [Concomitant]
  13. THEOPHYLLINE [Concomitant]
     Dosage: 300 MG, BID
  14. LEVOTHYROXINE SODIUM [Concomitant]
     Dosage: UNK UG, UNK
  15. FORTEO [Suspect]
     Indication: OSTEOPOROSIS
     Dosage: 20 UG, QD
     Route: 058
     Dates: start: 20110106
  16. CALTRATE PLUS-D [Concomitant]
     Dosage: UNK, BID
  17. POTASSIUM CHLORIDE [Concomitant]
     Dosage: 99 MG, QD
  18. OMEGA 3-6-9 [Concomitant]
     Dosage: 1000 MG, QD
  19. CYANOCOBALAMIN [Concomitant]
     Dosage: 1000 MG, QD
  20. METHOCARBAMOL [Concomitant]
     Dosage: 750 MG, UNK
  21. XANAX [Concomitant]
     Dosage: .25 MG, BID
  22. NAPROXEN (ALEVE) [Concomitant]
     Dosage: 1 DF, QD
  23. DILANTIN [Concomitant]
     Dosage: UNK MG, UNK
  24. BACTRIM [Concomitant]
  25. MULTI-VITAMINS [Concomitant]
     Dosage: UNK, QD

REACTIONS (1)
  - LOSS OF CONSCIOUSNESS [None]
